FAERS Safety Report 25420680 (Version 2)
Quarter: 2025Q3

REPORT INFORMATION
  Report Type: Spontaneous
  Country: US (occurrence: US)
  Receive Date: 20250611
  Receipt Date: 20250827
  Transmission Date: 20251021
  Serious: Yes (Other)
  Sender: GLAXOSMITHKLINE
  Company Number: US-GLAXOSMITHKLINE INC-US2025AMR069001

PATIENT
  Age: 47 Year
  Sex: Female
  Weight: 80.29 kg

DRUGS (1)
  1. NUCALA [Suspect]
     Active Substance: MEPOLIZUMAB
     Indication: Eosinophilic granulomatosis with polyangiitis
     Dosage: 300 MG, Q4W

REACTIONS (4)
  - Eosinophilic granulomatosis with polyangiitis [Recovering/Resolving]
  - Condition aggravated [Recovering/Resolving]
  - Injection site pain [Unknown]
  - Injection site swelling [Unknown]

NARRATIVE: CASE EVENT DATE: 20250512
